FAERS Safety Report 15137307 (Version 1)
Quarter: 2018Q3

REPORT INFORMATION
  Report Type: Spontaneous
  Country: DK (occurrence: DK)
  Receive Date: 20180712
  Receipt Date: 20180712
  Transmission Date: 20181010
  Serious: Yes (Hospitalization, Disabling)
  Sender: FDA-Public Use
  Company Number: DK-009507513-1807DNK004883

PATIENT
  Age: 59 Year
  Sex: Female

DRUGS (6)
  1. VITAMINS (UNSPECIFIED) [Concomitant]
     Active Substance: VITAMINS
  2. FOSAMAX [Suspect]
     Active Substance: ALENDRONATE SODIUM
     Indication: OSTEOPOROSIS
     Dosage: STRENGHT: 70 MG
     Route: 048
     Dates: start: 2005, end: 201507
  3. METHOTREXATE. [Concomitant]
     Active Substance: METHOTREXATE
     Indication: ANKYLOSING SPONDYLITIS
     Dosage: STRENGTH: 2.5 MG
     Route: 048
     Dates: start: 2005
  4. DICLOFENAC [Concomitant]
     Active Substance: DICLOFENAC
     Indication: ANKYLOSING SPONDYLITIS
     Route: 048
  5. SALAZOPYRIN [Concomitant]
     Active Substance: SULFASALAZINE
  6. CALCIUM (UNSPECIFIED) (+) VITAMIN D (UNSPECIFIED) [Concomitant]
     Active Substance: CALCIUM CARBONATE\VITAMIN D

REACTIONS (7)
  - Gait disturbance [Not Recovered/Not Resolved]
  - Walking aid user [Not Recovered/Not Resolved]
  - Femur fracture [Recovered/Resolved with Sequelae]
  - Joint stiffness [Not Recovered/Not Resolved]
  - Thoracic vertebral fracture [Unknown]
  - Arthralgia [Not Recovered/Not Resolved]
  - Lumbar vertebral fracture [Unknown]

NARRATIVE: CASE EVENT DATE: 201501
